FAERS Safety Report 17283064 (Version 1)
Quarter: 2020Q1

REPORT INFORMATION
  Report Type: Spontaneous
  Country: US (occurrence: US)
  Receive Date: 20191230
  Receipt Date: 20191230
  Transmission Date: 20200409
  Serious: Yes (Hospitalization)
  Sender: FDA-Public Use
  Company Number: None

PATIENT
  Age: 72 Year
  Sex: Male
  Weight: 102.51 kg

DRUGS (1)
  1. LUMASON [Suspect]
     Active Substance: SULFUR HEXAFLUORIDE
     Route: 042
     Dates: start: 20190513

REACTIONS (3)
  - Back pain [None]
  - Anaphylactic reaction [None]
  - Chest pain [None]

NARRATIVE: CASE EVENT DATE: 20190513
